FAERS Safety Report 14159669 (Version 3)
Quarter: 2017Q4

REPORT INFORMATION
  Report Type: Spontaneous
  Country: PL (occurrence: PL)
  Receive Date: 20171103
  Receipt Date: 20171117
  Transmission Date: 20180321
  Serious: Yes (Other)
  Sender: FDA-Public Use
  Company Number: PL-B.I. PHARMACEUTICALS,INC./RIDGEFIELD-2017-BI-056525

PATIENT
  Age: 83 Year
  Sex: Male

DRUGS (1)
  1. OMNIC OCAS [Suspect]
     Active Substance: TAMSULOSIN HYDROCHLORIDE
     Indication: POLLAKIURIA
     Dosage: 0.4 (UNIT NOT PROVIDED), UNKNOWN FREQ
     Route: 065
     Dates: start: 201709

REACTIONS (7)
  - Hypoacusis [Unknown]
  - Drug ineffective [Unknown]
  - Dizziness [Recovered/Resolved]
  - General physical health deterioration [Unknown]
  - Myocardial ischaemia [Unknown]
  - Headache [Recovered/Resolved]
  - Hypotension [Recovered/Resolved]

NARRATIVE: CASE EVENT DATE: 20170927
